FAERS Safety Report 8420910-8 (Version None)
Quarter: 2012Q2

REPORT INFORMATION
  Report Type: 
  Country: None (occurrence: None)
  Receive Date: 20120608
  Receipt Date: 20120604
  Transmission Date: 20120825
  Serious: Yes (Death)
  Sender: FDA-Public Use
  Company Number: US-PFIZER INC-2012134391

PATIENT
  Sex: Male
  Weight: 81.633 kg

DRUGS (4)
  1. VFEND [Suspect]
     Indication: ASPERGILLOSIS
     Dosage: 200 MG, 2X/DAY
     Route: 048
     Dates: start: 20111215
  2. VFEND [Suspect]
     Dosage: UNK
     Route: 048
  3. CELLCEPT [Concomitant]
     Dosage: UNK
  4. PROGRAF [Concomitant]
     Dosage: UNK

REACTIONS (1)
  - CARDIAC ARREST [None]
